FAERS Safety Report 5853408-1 (Version None)
Quarter: 2008Q3

REPORT INFORMATION
  Report Type: 
  Country: None (occurrence: None)
  Receive Date: 20080821
  Receipt Date: 20080811
  Transmission Date: 20090109
  Serious: Yes (Other)
  Sender: FDA-Public Use
  Company Number: BR-PFIZER INC-2008067876

PATIENT
  Sex: Male
  Weight: 85 kg

DRUGS (3)
  1. CHANTIX [Suspect]
     Indication: SMOKING CESSATION THERAPY
     Route: 048
     Dates: start: 20080101, end: 20080808
  2. NATRILIX - SLOW RELEASE [Concomitant]
  3. VITAMIN TAB [Concomitant]

REACTIONS (1)
  - TRIGEMINAL NEURALGIA [None]
